FAERS Safety Report 13073481 (Version 1)
Quarter: 2016Q4

REPORT INFORMATION
  Report Type: Report from Study
  Country: None (occurrence: CA)
  Receive Date: 20161229
  Receipt Date: 20161229
  Transmission Date: 20170207
  Serious: Yes (Hospitalization, Other)
  Sender: FDA-Public Use
  Company Number: CA-ABBVIE-16K-028-1820066-00

PATIENT
  Age: 28 Year
  Sex: Female

DRUGS (1)
  1. HUMIRA [Suspect]
     Active Substance: ADALIMUMAB
     Indication: CROHN^S DISEASE
     Route: 058
     Dates: start: 20160407

REACTIONS (19)
  - Oesophageal spasm [Not Recovered/Not Resolved]
  - Pulmonary mass [Not Recovered/Not Resolved]
  - Dyschezia [Unknown]
  - Musculoskeletal pain [Unknown]
  - Bacterial vaginosis [Not Recovered/Not Resolved]
  - Anal fistula [Not Recovered/Not Resolved]
  - Haemorrhoids [Not Recovered/Not Resolved]
  - Abortion induced [Recovered/Resolved]
  - Helicobacter test positive [Unknown]
  - Ovarian mass [Not Recovered/Not Resolved]
  - Unwanted pregnancy [Unknown]
  - Foetal death [Unknown]
  - Human chorionic gonadotropin increased [Unknown]
  - Haematochezia [Unknown]
  - Crohn^s disease [Not Recovered/Not Resolved]
  - Frequent bowel movements [Not Recovered/Not Resolved]
  - Constipation [Unknown]
  - Clostridium difficile infection [Not Recovered/Not Resolved]
  - Right atrial dilatation [Not Recovered/Not Resolved]

NARRATIVE: CASE EVENT DATE: 2016
